FAERS Safety Report 19313895 (Version 4)
Quarter: 2021Q4

REPORT INFORMATION
  Report Type: Report from Study
  Country: US (occurrence: US)
  Receive Date: 20210527
  Receipt Date: 20211123
  Transmission Date: 20220304
  Serious: Yes (Hospitalization, Other)
  Sender: FDA-Public Use
  Company Number: US-TAIHO ONCOLOGY INC-EU-2021-01375

PATIENT
  Age: 57 Year
  Sex: Male

DRUGS (10)
  1. LONSURF [Suspect]
     Active Substance: TIPIRACIL HYDROCHLORIDE\TRIFLURIDINE
     Indication: Colon cancer
     Dosage: CYCLE 1-3
     Route: 048
     Dates: start: 20210322
  2. ELOXATIN [Suspect]
     Active Substance: OXALIPLATIN
     Indication: Colon cancer
  3. AMLODIPINE [Concomitant]
     Active Substance: AMLODIPINE BESYLATE
  4. CANDESARTAN [Concomitant]
     Active Substance: CANDESARTAN
  5. BIKTARVY [Concomitant]
     Active Substance: BICTEGRAVIR SODIUM\EMTRICITABINE\TENOFOVIR ALAFENAMIDE FUMARATE
  6. METOPROLOL [Concomitant]
     Active Substance: METOPROLOL
  7. OMEPRAZOLE [Concomitant]
     Active Substance: OMEPRAZOLE
  8. LOPERAMIDE [Concomitant]
     Active Substance: LOPERAMIDE
  9. ONDANSETRON [Concomitant]
     Active Substance: ONDANSETRON
  10. SPIRONOLACTONE [Concomitant]
     Active Substance: SPIRONOLACTONE

REACTIONS (7)
  - Dehydration [Unknown]
  - Supraventricular tachycardia [Unknown]
  - Hypokalaemia [Unknown]
  - Anaemia [Unknown]
  - Somnolence [Not Recovered/Not Resolved]
  - Anorectal discomfort [Not Recovered/Not Resolved]
  - Fatigue [Unknown]

NARRATIVE: CASE EVENT DATE: 20210101
